FAERS Safety Report 4707819-8 (Version None)
Quarter: 2005Q2

REPORT INFORMATION
  Report Type: 
  Country: None (occurrence: None)
  Receive Date: 20050629
  Receipt Date: 20050316
  Transmission Date: 20051028
  Serious: No
  Sender: FDA-Public Use
  Company Number: 05P-163-0294360-00

PATIENT
  Age: 72 Year
  Sex: Male

DRUGS (13)
  1. HUMIRA [Suspect]
     Indication: RHEUMATOID ARTHRITIS
     Dosage: 40 MG, 1 IN 2 WK, SUBCUTANEOUS
     Route: 058
     Dates: start: 20050304
  2. POTASSIUM CHLORIDE [Concomitant]
  3. ZINC [Concomitant]
  4. DOXAZOSIN MESYLATE [Concomitant]
  5. COUGH SYRUP [Concomitant]
  6. PROPOXYPLANE [Concomitant]
  7. METHOTREXATE SODIUM [Concomitant]
  8. SULFASALAZINE [Concomitant]
  9. . [Concomitant]
  10. PREDNISONE [Concomitant]
  11. CALCIUM GLUCONATE [Concomitant]
  12. ASCORBIC ACID [Concomitant]
  13. RETINOL [Concomitant]

REACTIONS (3)
  - ARTHRITIS [None]
  - BRONCHIAL INFECTION [None]
  - TOOTH INFECTION [None]
